FAERS Safety Report 4490050-1 (Version None)
Quarter: 2004Q4

REPORT INFORMATION
  Report Type: 
  Country: None (occurrence: None)
  Receive Date: 20041101
  Receipt Date: 20040910
  Transmission Date: 20050328
  Serious: Yes (Other)
  Sender: FDA-Public Use
  Company Number: PHNU2004DE03203

PATIENT
  Age: 33 Year
  Sex: Male

DRUGS (1)
  1. SANDIMMUNE [Suspect]
     Indication: APLASTIC ANAEMIA
     Dates: start: 19900101, end: 20020101

REACTIONS (6)
  - CARDIAC FAILURE [None]
  - CONGESTIVE CARDIOMYOPATHY [None]
  - CYTOMEGALOVIRUS MYOCARDITIS [None]
  - DYSPNOEA [None]
  - RENAL FAILURE [None]
  - VENTRICULAR DYSFUNCTION [None]
